FAERS Safety Report 14146264 (Version 1)
Quarter: 2017Q4

REPORT INFORMATION
  Report Type: Report from Study
  Country: DK (occurrence: DK)
  Receive Date: 20171031
  Receipt Date: 20171031
  Transmission Date: 20180321
  Serious: Yes (Life-Threatening, Other)
  Sender: FDA-Public Use
  Company Number: DK-GLAXOSMITHKLINE-DK2017GSK139032

PATIENT
  Age: 34 Year
  Sex: Male

DRUGS (3)
  1. SALBUTAMOL SULPHATE [Suspect]
     Active Substance: ALBUTEROL SULFATE
     Indication: ASTHMA
     Dosage: UNK
     Dates: end: 19931008
  2. BETNOVAT [Concomitant]
     Active Substance: BETAMETHASONE
  3. ADRENALIN [Concomitant]
     Active Substance: EPINEPHRINE

REACTIONS (5)
  - Chest discomfort [Unknown]
  - Cardiac disorder [Unknown]
  - Cardiac arrest [Unknown]
  - Asthma [Unknown]
  - Drug ineffective [Unknown]

NARRATIVE: CASE EVENT DATE: 19931008
